FAERS Safety Report 6860805-4 (Version None)
Quarter: 2010Q3

REPORT INFORMATION
  Report Type: 
  Country: None (occurrence: None)
  Receive Date: 20100720
  Receipt Date: 20100714
  Transmission Date: 20110219
  Serious: Yes (Death)
  Sender: FDA-Public Use
  Company Number: US-MERCK-1007USA01946

PATIENT
  Age: 77 Year
  Sex: Male

DRUGS (13)
  1. PRINIVIL [Suspect]
     Route: 048
  2. WARFARIN SODIUM [Suspect]
     Route: 065
  3. SIMVASTATIN [Suspect]
     Route: 048
  4. METOPROLOL [Suspect]
     Route: 065
  5. ALLOPURINOL [Suspect]
     Route: 065
  6. GLIPIZIDE [Suspect]
     Route: 065
  7. CITALOPRAM [Suspect]
     Route: 065
  8. DIGOXIN [Suspect]
     Route: 065
  9. LEVOTHYROXINE SODIUM [Suspect]
     Route: 065
  10. OMEPRAZOLE [Suspect]
     Route: 065
  11. COLCHICINE [Suspect]
     Route: 065
  12. FUROSEMIDE [Suspect]
     Route: 065
  13. NAMENDA [Suspect]
     Route: 065

REACTIONS (1)
  - DEATH [None]
